FAERS Safety Report 8692684 (Version 2)
Quarter: 2013Q1

REPORT INFORMATION
  Report Type: Spontaneous
  Country: US (occurrence: US)
  Receive Date: 20120730
  Receipt Date: 20130131
  Transmission Date: 20140127
  Serious: No
  Sender: FDA-Public Use
  Company Number: US-PFIZER INC-2012182906

PATIENT
  Age: 55 Year
  Sex: Female
  Weight: 70.3 kg

DRUGS (7)
  1. NICOTROL INHALER [Suspect]
     Indication: SMOKING CESSATION THERAPY
     Dosage: UNK, AS NEEDED
     Route: 055
     Dates: start: 2007, end: 2009
  2. NICOTROL INHALER [Suspect]
     Dosage: UNK
     Route: 055
     Dates: start: 2010, end: 2010
  3. NICOTROL INHALER [Suspect]
     Dosage: 4 MG, AS NEEDED
     Route: 055
     Dates: start: 20120601, end: 201206
  4. NICOTROL INHALER [Suspect]
     Dosage: UNK, AS NEEDED
     Route: 055
     Dates: start: 201206
  5. ZOCOR [Concomitant]
     Indication: BLOOD CHOLESTEROL ABNORMAL
     Dosage: 40 MG, DAILY
  6. ASPIRIN [Concomitant]
     Indication: BLOOD CHOLESTEROL ABNORMAL
     Dosage: 81 MG, DAILY
  7. METOPROLOL [Concomitant]
     Indication: MYOCARDIAL INFARCTION
     Dosage: 25 MG, 2X/DAY

REACTIONS (3)
  - Product taste abnormal [Unknown]
  - Poor quality drug administered [Unknown]
  - Drug ineffective [Unknown]
